FAERS Safety Report 9092191 (Version 1)
Quarter: 2013Q1

REPORT INFORMATION
  Report Type: Report from Study
  Country: US (occurrence: US)
  Receive Date: 20130218
  Receipt Date: 20130218
  Transmission Date: 20140127
  Serious: No
  Sender: FDA-Public Use
  Company Number: US-ABBOTT-12P-163-0912924-00

PATIENT
  Sex: Male
  Weight: 90.8 kg

DRUGS (3)
  1. SIMCOR 1000MG/40MG [Suspect]
     Indication: BLOOD CHOLESTEROL INCREASED
     Dosage: 1000/40MG DAILY
  2. ASA [Concomitant]
     Indication: PRODUCT USED FOR UNKNOWN INDICATION
  3. VITAMIN D3 [Concomitant]
     Indication: PRODUCT USED FOR UNKNOWN INDICATION

REACTIONS (4)
  - Flushing [Unknown]
  - Erythema [Unknown]
  - Skin warm [Unknown]
  - Pruritus [Unknown]
